FAERS Safety Report 6103949-7 (Version None)
Quarter: 2009Q1

REPORT INFORMATION
  Report Type: 
  Country: None (occurrence: None)
  Receive Date: 20090305
  Receipt Date: 20090226
  Transmission Date: 20090719
  Serious: Yes (Other)
  Sender: FDA-Public Use
  Company Number: B0559482A

PATIENT
  Age: 10 Year
  Sex: Female
  Weight: 32 kg

DRUGS (2)
  1. RELENZA [Suspect]
     Indication: INFLUENZA
     Dosage: 5MG THREE TIMES PER DAY
     Route: 055
     Dates: start: 20090128, end: 20090129
  2. CLARITH [Suspect]
     Indication: INFECTION PROPHYLAXIS
     Dosage: 100MG THREE TIMES PER DAY
     Route: 048
     Dates: start: 20090128, end: 20090129

REACTIONS (6)
  - ABASIA [None]
  - BLOOD CREATINE PHOSPHOKINASE INCREASED [None]
  - HEPATIC FUNCTION ABNORMAL [None]
  - MYALGIA [None]
  - PAIN IN EXTREMITY [None]
  - RHABDOMYOLYSIS [None]
